FAERS Safety Report 4296039-X (Version None)
Quarter: 2004Q1

REPORT INFORMATION
  Report Type: 
  Country: None (occurrence: None)
  Receive Date: 20040212
  Receipt Date: 20040203
  Transmission Date: 20041129
  Serious: No
  Sender: FDA-Public Use
  Company Number: 04H-163-0249203-00

PATIENT
  Age: 67 Year
  Sex: Female
  Weight: 65 kg

DRUGS (4)
  1. ETOMIDATE [Suspect]
     Indication: SEDATION
     Dosage: 7 MG, TWICE, INTRAVENOUS
     Route: 042
  2. MORPHINE [Concomitant]
  3. OXYGEN [Concomitant]
  4. FENTANYL [Concomitant]

REACTIONS (5)
  - ANAESTHETIC COMPLICATION [None]
  - MYOCLONUS [None]
  - OXYGEN SATURATION DECREASED [None]
  - RESPIRATION ABNORMAL [None]
  - RESPIRATORY RATE DECREASED [None]
